FAERS Safety Report 5448904-5 (Version None)
Quarter: 2007Q3

REPORT INFORMATION
  Report Type: 
  Country: None (occurrence: None)
  Receive Date: 20070911
  Receipt Date: 20070904
  Transmission Date: 20080115
  Serious: Yes (Hospitalization)
  Sender: FDA-Public Use
  Company Number: SK-AVENTIS-200718050GDDC

PATIENT
  Age: 58 Year
  Sex: Female

DRUGS (1)
  1. ARAVA [Suspect]

REACTIONS (1)
  - CACHEXIA [None]
